FAERS Safety Report 23937320 (Version 1)
Quarter: 2024Q2

REPORT INFORMATION
  Report Type: Spontaneous
  Country: DE (occurrence: DE)
  Receive Date: 20240604
  Receipt Date: 20240604
  Transmission Date: 20240716
  Serious: Yes (Hospitalization, Other)
  Sender: FDA-Public Use
  Company Number: DE-009507513-2404DEU011778

PATIENT
  Age: 79 Year
  Sex: Male
  Weight: 92 kg

DRUGS (29)
  1. CARBOPLATIN [Suspect]
     Active Substance: CARBOPLATIN
     Indication: Product used for unknown indication
     Dosage: UNK
     Route: 065
  2. CISPLATIN [Suspect]
     Active Substance: CISPLATIN
     Indication: Non-small cell lung cancer
     Dosage: 153 MG FIRST LINE
     Route: 065
     Dates: start: 20231123, end: 20231214
  3. PEMETREXED [Suspect]
     Active Substance: PEMETREXED
     Indication: Non-small cell lung cancer
     Dosage: 1020 MG FIRST LINE
     Route: 065
     Dates: start: 20231123, end: 20231214
  4. PEMBROLIZUMAB [Suspect]
     Active Substance: PEMBROLIZUMAB
     Indication: Non-small cell lung cancer
     Dosage: 200MG FIRST LINE
     Route: 065
     Dates: start: 20231123, end: 20240209
  5. APREPITANT [Concomitant]
     Active Substance: APREPITANT
     Indication: Product used for unknown indication
     Dosage: 125 MG ORAL, PER CYCLE, DAY 1
     Route: 048
     Dates: start: 20231123
  6. APREPITANT [Concomitant]
     Active Substance: APREPITANT
     Dosage: 80 MG ORAL, PER CYCLE, DAYS 2-3
     Route: 048
     Dates: start: 20231124
  7. DEXAMETHASONE [Concomitant]
     Active Substance: DEXAMETHASONE
     Indication: Product used for unknown indication
     Dosage: 4 MG ORAL PER CYCLE
     Route: 048
     Dates: start: 20231123
  8. DEXAMETHASONE [Concomitant]
     Active Substance: DEXAMETHASONE
     Dosage: 8 MG I.V., PER CYCLE
     Route: 042
     Dates: start: 20231123
  9. DEXAMETHASONE [Concomitant]
     Active Substance: DEXAMETHASONE
     Dosage: 8 MG ORAL PER CYCLE, DAY 2-3
     Route: 048
     Dates: start: 20231124
  10. DEXAMETHASONE [Concomitant]
     Active Substance: DEXAMETHASONE
     Dosage: 8 MG ORAL PER CYCLE, PREVIOUS DAY
     Route: 048
     Dates: start: 20231122
  11. ELIQUIS [Concomitant]
     Active Substance: APIXABAN
     Indication: Product used for unknown indication
     Dosage: 5 MILLIGRAM, BID
     Route: 048
     Dates: end: 20231222
  12. ENTRESTO [Concomitant]
     Active Substance: SACUBITRIL\VALSARTAN
     Indication: Product used for unknown indication
     Dosage: 26 MILLIGRAM, BID
     Route: 048
     Dates: start: 2019
  13. FOLIC ACID [Concomitant]
     Active Substance: FOLIC ACID
     Indication: Product used for unknown indication
     Dosage: 5 MILLIGRAM, QD
     Route: 048
     Dates: start: 20231226, end: 20240112
  14. GRANISETRON [Concomitant]
     Active Substance: GRANISETRON
     Indication: Product used for unknown indication
     Dosage: 5 MILLIGRAM, BID
     Route: 048
     Dates: end: 20231222
  15. GRANISETRON [Concomitant]
     Active Substance: GRANISETRON
     Dosage: 1 MG I.V. PER CYCLE
     Route: 042
     Dates: start: 20231123
  16. GRANISETRON HYDROCHLORIDE [Concomitant]
     Active Substance: GRANISETRON HYDROCHLORIDE
     Indication: Product used for unknown indication
     Dosage: 2 MG ORAL PER CYCLE, DAY 2-3
     Route: 048
     Dates: start: 20231124
  17. ISOTONIC SODIUM CHLORIDE SOLUTION [Concomitant]
     Active Substance: SODIUM CHLORIDE
     Indication: Product used for unknown indication
     Dosage: 500 ML I.V., PER CYCLE, DAY 1-3
     Route: 065
     Dates: start: 20231123
  18. ISOTONIC SODIUM CHLORIDE SOLUTION [Concomitant]
     Active Substance: SODIUM CHLORIDE
     Dosage: 500 ML I.V., PER CYCLE, DAY 1-3
     Route: 065
     Dates: start: 20231123
  19. ISOTONIC SODIUM CHLORIDE SOLUTION [Concomitant]
     Active Substance: SODIUM CHLORIDE
     Dosage: 500 ML I.V., PER CYCLE, DAY 1-3
     Route: 065
     Dates: start: 20231123
  20. ISOTONIC SODIUM CHLORIDE SOLUTION [Concomitant]
     Active Substance: SODIUM CHLORIDE
     Dosage: 500 ML I.V., PER CYCLE, DAY 1-3
     Route: 065
     Dates: start: 20231123
  21. Novalgin [Concomitant]
     Indication: Product used for unknown indication
     Dosage: 1000 MG I.V. PER CYCLE
     Route: 065
     Dates: start: 20231123
  22. OMEPRAZOLE [Concomitant]
     Active Substance: DONEPEZIL HYDROCHLORIDE\OMEPRAZOLE\OMEPRAZOLE MAGNESIUM
     Indication: Product used for unknown indication
     Dosage: 20 MILLIGRAM, QD
     Route: 048
  23. ACETAMINOPHEN [Concomitant]
     Active Substance: ACETAMINOPHEN
     Indication: Product used for unknown indication
     Dosage: 1000 MG I.V. PER CYCLE
     Route: 065
     Dates: start: 20231123
  24. ACETAMINOPHEN [Concomitant]
     Active Substance: ACETAMINOPHEN
     Dosage: 1000 MG I.V. PER CYCLE
     Route: 065
     Dates: start: 20231123
  25. PREDNISOLONE [Concomitant]
     Active Substance: PREDNISOLONE
     Indication: Product used for unknown indication
     Dosage: 5 MILLIGRAM, BID
     Route: 048
     Dates: end: 20231223
  26. PREDNISOLONE [Concomitant]
     Active Substance: PREDNISOLONE
     Dosage: 5 MILLIGRAM, BID
     Route: 048
     Dates: start: 20240112
  27. PREDNISOLONE [Concomitant]
     Active Substance: PREDNISOLONE
     Dosage: 5 MILLIGRAM, BID
     Route: 048
     Dates: start: 1994, end: 20231223
  28. PREDNISONE [Concomitant]
     Active Substance: PREDNISONE
     Indication: Product used for unknown indication
     Dosage: 5 MILLIGRAM, QD
     Route: 048
     Dates: start: 20231226, end: 20240112
  29. VITAMIN B12 [Concomitant]
     Active Substance: CYANOCOBALAMIN
     Indication: Product used for unknown indication
     Dosage: 1000 ?G S.C. PER CYCLE, MINIMUM 7 DAYS PRIOR TO CTX-START
     Route: 048

REACTIONS (6)
  - Pancytopenia [Recovering/Resolving]
  - Pancytopenia [Recovering/Resolving]
  - Mucosal inflammation [Recovering/Resolving]
  - Anaemia [Recovering/Resolving]
  - Leukopenia [Recovering/Resolving]
  - Immune thrombocytopenia [Recovering/Resolving]

NARRATIVE: CASE EVENT DATE: 20231219
